FAERS Safety Report 21866047 (Version 2)
Quarter: 2023Q1

REPORT INFORMATION
  Report Type: Report from Study
  Country: US (occurrence: US)
  Receive Date: 20230116
  Receipt Date: 20230315
  Transmission Date: 20230417
  Serious: No
  Sender: FDA-Public Use
  Company Number: US-ABBVIE-4237070

PATIENT
  Age: 70 Year
  Sex: Male

DRUGS (1)
  1. SKYRIZI [Suspect]
     Active Substance: RISANKIZUMAB-RZAA
     Indication: Psoriasis
     Route: 058
     Dates: start: 202110

REACTIONS (8)
  - Pruritus [Unknown]
  - Fall [Unknown]
  - Unevaluable event [Unknown]
  - Blood cholesterol increased [Recovered/Resolved]
  - Weight decreased [Unknown]
  - Arthralgia [Unknown]
  - Limb injury [Unknown]
  - Laboratory test abnormal [Recovered/Resolved]

NARRATIVE: CASE EVENT DATE: 20211001
